FAERS Safety Report 23597938 (Version 1)
Quarter: 2024Q1

REPORT INFORMATION
  Report Type: Spontaneous
  Country: FR (occurrence: FR)
  Receive Date: 20240305
  Receipt Date: 20240305
  Transmission Date: 20240409
  Serious: Yes (Hospitalization)
  Sender: FDA-Public Use
  Company Number: None

PATIENT
  Age: 37 Year
  Sex: Female

DRUGS (3)
  1. IBUPROFEN [Suspect]
     Active Substance: IBUPROFEN
     Indication: Product used for unknown indication
     Dosage: 4 DOSAGE FORM (1 TOTAL)
     Route: 048
     Dates: start: 20221015, end: 20221015
  2. BUPRENORPHINE [Suspect]
     Active Substance: BUPRENORPHINE
     Indication: Product used for unknown indication
     Dosage: 60 MILLIGRAM (1 TOTAL)
     Route: 048
     Dates: start: 20221015, end: 20221015
  3. TEGRETOL [Suspect]
     Active Substance: CARBAMAZEPINE
     Indication: Product used for unknown indication
     Dosage: BETWEEN 5 AND 10 TABS TAKEN IN A SINGLE DOSE
     Route: 048
     Dates: start: 20221015, end: 20221015

REACTIONS (3)
  - Drug use disorder [Recovered/Resolved]
  - Poisoning deliberate [Recovered/Resolved]
  - Somnolence [Recovered/Resolved]

NARRATIVE: CASE EVENT DATE: 20221015
